FAERS Safety Report 5224026-3 (Version None)
Quarter: 2007Q1

REPORT INFORMATION
  Report Type: 
  Country: None (occurrence: None)
  Receive Date: 20070130
  Receipt Date: 20070119
  Transmission Date: 20070707
  Serious: Yes (Hospitalization)
  Sender: FDA-Public Use
  Company Number: 2007GB00138

PATIENT
  Age: 81 Year
  Sex: Female

DRUGS (5)
  1. QUETIAPINE FUMARATE [Suspect]
     Indication: DEMENTIA
     Route: 048
     Dates: end: 20060917
  2. ASPIRIN [Concomitant]
     Indication: INFARCTION
     Route: 048
  3. LACTULOSE [Concomitant]
     Indication: CONSTIPATION
     Route: 048
  4. OMEPRAZOLE [Concomitant]
     Route: 048
     Dates: end: 20060919
  5. RIVASTIGMINE [Concomitant]
     Route: 048
     Dates: end: 20060923

REACTIONS (1)
  - CEREBRAL INFARCTION [None]
